FAERS Safety Report 23836185 (Version 2)
Quarter: 2024Q2

REPORT INFORMATION
  Report Type: Report from Study
  Country: FI (occurrence: FI)
  Receive Date: 20240509
  Receipt Date: 20240528
  Transmission Date: 20240716
  Serious: Yes (Other)
  Sender: FDA-Public Use
  Company Number: FI-MYLANLABS-2024M1041336

PATIENT
  Age: 58 Year
  Sex: Male

DRUGS (1)
  1. CLOZAPINE [Suspect]
     Active Substance: CLOZAPINE
     Indication: Product used for unknown indication
     Dosage: 250 MILLIGRAM, QD (STOP DATE: 30-APR-2024)
     Route: 065
     Dates: start: 202404, end: 202404

REACTIONS (4)
  - Eosinophilia [Recovering/Resolving]
  - Febrile infection [Recovering/Resolving]
  - C-reactive protein increased [Recovered/Resolved]
  - Eczema [Recovering/Resolving]

NARRATIVE: CASE EVENT DATE: 20240101
